FAERS Safety Report 8834774 (Version 2)
Quarter: 2014Q3

REPORT INFORMATION
  Report Type: Report from Study
  Country: US (occurrence: US)
  Receive Date: 20121010
  Receipt Date: 20140827
  Transmission Date: 20150326
  Serious: Yes (Hospitalization)
  Sender: FDA-Public Use
  Company Number: US-BRISTOL-MYERS SQUIBB COMPANY-16829616

PATIENT
  Age: 56 Year
  Sex: Female
  Weight: 78.3 kg

DRUGS (1)
  1. IPILIMUMAB [Suspect]
     Active Substance: IPILIMUMAB
     Indication: MALIGNANT MELANOMA
     Dosage: LAST ADMINISTERED DATE:10SEP2012. TOTAL 785 MG?TOTAL DOSE:765MG
     Route: 042
     Dates: start: 20120709

REACTIONS (3)
  - Rash maculo-papular [Unknown]
  - Pneumonitis [Recovering/Resolving]
  - Pneumonia [Recovered/Resolved]

NARRATIVE: CASE EVENT DATE: 20120729
